FAERS Safety Report 21667909 (Version 1)
Quarter: 2022Q4

REPORT INFORMATION
  Report Type: Spontaneous
  Country: US (occurrence: US)
  Receive Date: 20221201
  Receipt Date: 20221201
  Transmission Date: 20230112
  Serious: Yes (Other)
  Sender: FDA-Public Use
  Company Number: US-BRISTOL-MYERS SQUIBB COMPANY-2022-145679

PATIENT
  Age: 66 Year
  Sex: Male

DRUGS (2)
  1. POMALYST [Suspect]
     Active Substance: POMALIDOMIDE
     Indication: Plasma cell myeloma
     Dosage: TAKE 1 CAPSULE (4 MG) BY MOUTH ON EVEN CALENDAR DAYS FOR 21 OF 28 DAY CYCLE
     Route: 048
     Dates: start: 202112
  2. POMALYST [Suspect]
     Active Substance: POMALIDOMIDE
     Dosage: TAKE 1 CAPSULE (2MG) BY MOUTH ON ODD CALENDAR DAYS FOR 21 OF 28 DAY CYCLE.
     Route: 048
     Dates: start: 202112

REACTIONS (1)
  - Drug ineffective [Unknown]
